FAERS Safety Report 23388378 (Version 1)
Quarter: 2024Q1

REPORT INFORMATION
  Report Type: Spontaneous
  Country: US (occurrence: US)
  Receive Date: 20240110
  Receipt Date: 20240110
  Transmission Date: 20240410
  Serious: No
  Sender: FDA-Public Use
  Company Number: US-MYLANLABS-2023M1132899

PATIENT
  Sex: Female

DRUGS (2)
  1. XANAX [Suspect]
     Active Substance: ALPRAZOLAM
     Indication: Anxiety
     Dosage: 0.25 MILLIGRAM (TAKE 1-2 TABLETS BY MOUTH 3 TIMES DAILY IS NEEDED FOR ANXIETY)
     Route: 048
  2. IBRANCE [Concomitant]
     Active Substance: PALBOCICLIB
     Indication: Breast cancer metastatic
     Dosage: 100 MILLIGRAM, 28D CYCLE (TAKE 1 TABLET BY MOUTH DAYS 1-21, THEN 7   DAYS OFF, REPEAT EVERY 28 DAYS)
     Route: 048

REACTIONS (1)
  - Off label use [Unknown]
